FAERS Safety Report 10014580 (Version 2)
Quarter: 2014Q1

REPORT INFORMATION
  Report Type: Spontaneous
  Country: FR (occurrence: FR)
  Receive Date: 20140317
  Receipt Date: 20140328
  Transmission Date: 20141002
  Serious: Yes (Hospitalization)
  Sender: FDA-Public Use
  Company Number: FR-JNJFOC-20140307599

PATIENT
  Age: 52 Year
  Sex: Female
  Weight: 78 kg

DRUGS (7)
  1. XARELTO [Suspect]
     Indication: PRODUCT USED FOR UNKNOWN INDICATION
     Route: 048
     Dates: start: 20131102, end: 20131109
  2. CORDARONE [Suspect]
     Indication: ATRIAL FIBRILLATION
     Route: 048
     Dates: start: 20131030, end: 20131105
  3. STAGID [Concomitant]
     Route: 065
  4. RUPATADINE [Concomitant]
     Route: 065
  5. MONTELUKAST [Concomitant]
     Route: 065
  6. IRBESARTAN [Concomitant]
     Route: 065
  7. ALPRAZOLAM [Concomitant]
     Route: 065

REACTIONS (1)
  - Arthralgia [Recovered/Resolved]
